FAERS Safety Report 7302785-3 (Version None)
Quarter: 2011Q1

REPORT INFORMATION
  Report Type: 
  Country: None (occurrence: None)
  Receive Date: 20110218
  Receipt Date: 20110209
  Transmission Date: 20110831
  Serious: Yes (Other)
  Sender: FDA-Public Use
  Company Number: US-WATSON-2011-01685

PATIENT
  Sex: Male

DRUGS (2)
  1. REGLAN [Suspect]
     Indication: PRODUCT USED FOR UNKNOWN INDICATION
     Dosage: UNK
     Route: 048
     Dates: start: 20030601, end: 20040301
  2. METOCLOPRAMIDE HYDROCHLORIDE [Suspect]
     Indication: PRODUCT USED FOR UNKNOWN INDICATION
     Dosage: UNK
     Route: 048
     Dates: start: 20030601, end: 20040301

REACTIONS (5)
  - INCORRECT DRUG ADMINISTRATION DURATION [None]
  - OROMANDIBULAR DYSTONIA [None]
  - PARKINSON'S DISEASE [None]
  - RESTLESS LEGS SYNDROME [None]
  - DYSKINESIA [None]
